FAERS Safety Report 12531252 (Version 1)
Quarter: 2016Q3

REPORT INFORMATION
  Report Type: Spontaneous
  Country: MX (occurrence: MX)
  Receive Date: 20160706
  Receipt Date: 20160706
  Transmission Date: 20161109
  Serious: Yes (Death, Other)
  Sender: FDA-Public Use
  Company Number: MX-TAKEDA-2016MPI006096

PATIENT

DRUGS (1)
  1. VELCADE [Suspect]
     Active Substance: BORTEZOMIB
     Indication: UNEVALUABLE EVENT
     Dosage: UNK
     Route: 065

REACTIONS (12)
  - Pneumonia [Unknown]
  - Thrombocytopenia [Unknown]
  - Abdominal distension [Unknown]
  - Nausea [Unknown]
  - Neuropathy peripheral [Unknown]
  - Diarrhoea [Unknown]
  - Constipation [Unknown]
  - Death [Fatal]
  - Ataxia telangiectasia [Unknown]
  - Vomiting [Unknown]
  - Herpes zoster [Unknown]
  - Myocardial infarction [Unknown]
